FAERS Safety Report 9786466 (Version 1)
Quarter: 2013Q4

REPORT INFORMATION
  Report Type: Spontaneous
  Country: FR (occurrence: None)
  Receive Date: 20131226
  Receipt Date: 20131226
  Transmission Date: 20140711
  Serious: Yes (Death, Hospitalization, Disabling)
  Sender: FDA-Public Use
  Company Number: FK201305522

PATIENT
  Age: 64 Year
  Sex: Male

DRUGS (14)
  1. PACLITAXEL [Suspect]
     Indication: LUNG NEOPLASM MALIGNANT
     Route: 042
     Dates: start: 20131004
  2. CARBOPLATINE [Suspect]
     Indication: LUNG NEOPLASM MALIGNANT
     Route: 042
     Dates: start: 20131004
  3. AMITRIPTYLINE HYDROCHLORIDE [Concomitant]
  4. XANAX (ALPRAZOLAM) [Concomitant]
  5. ALDACTONE (SPIRONO [Concomitant]
  6. KYTRIL [Suspect]
     Indication: PRODUCT USED FOR UNKNOWN INDICATION
     Route: 048
     Dates: start: 20131004
  7. SOLUMEDROL [Suspect]
     Indication: PRODUCT USED FOR UNKNOWN INDICATION
     Route: 042
  8. POLARAMINE [Suspect]
     Indication: PRODUCT USED FOR UNKNOWN INDICATION
     Route: 058
     Dates: start: 20131004
  9. AZANTAC [Suspect]
     Indication: PRODUCT USED FOR UNKNOWN INDICATION
     Route: 042
     Dates: start: 20131004
  10. EMEND [Suspect]
     Indication: PRODUCT USED FOR UNKNOWN INDICATION
     Route: 048
     Dates: start: 20131004, end: 20131007
  11. OGAST (LANSOPRAZOLE) [Concomitant]
  12. MIFLONIL 400  (BUDESONIDE) [Concomitant]
  13. ONBREZ 150 (INDACATEROL MALEATE) [Concomitant]
  14. BRONCHODUAL (DUOVENT) [Concomitant]

REACTIONS (3)
  - Hemiparesis [None]
  - Hyponatraemia [None]
  - Cerebral ischaemia [None]
